FAERS Safety Report 6717910-2 (Version None)
Quarter: 2010Q2

REPORT INFORMATION
  Report Type: 
  Country: None (occurrence: None)
  Receive Date: 20100510
  Receipt Date: 20091026
  Transmission Date: 20101027
  Serious: No
  Sender: FDA-Public Use
  Company Number: PHHY2009US60939

PATIENT
  Sex: Female

DRUGS (2)
  1. GLEEVEC [Suspect]
     Dosage: 400 MG, QD
     Route: 048
  2. TASIGNA [Suspect]
     Dosage: UNK
     Dates: start: 20100315

REACTIONS (1)
  - DRUG ADMINISTRATION ERROR [None]
